FAERS Safety Report 9265451 (Version 6)
Quarter: 2015Q1

REPORT INFORMATION
  Report Type: Spontaneous
  Country: US (occurrence: US)
  Receive Date: 20130501
  Receipt Date: 20150205
  Transmission Date: 20150721
  Serious: Yes (Hospitalization, Other)
  Sender: FDA-Public Use
  Company Number: US-009507513-1304USA017008

PATIENT
  Sex: Female
  Weight: 71.2 kg

DRUGS (5)
  1. ALENDRONATE SODIUM. [Suspect]
     Active Substance: ALENDRONATE SODIUM
     Dosage: 70 MG, UNK
     Route: 048
  2. SYNTHROID [Concomitant]
     Active Substance: LEVOTHYROXINE SODIUM
     Indication: HYPOTHYROIDISM
     Dosage: UNK
     Dates: start: 1995
  3. FOSAMAX [Suspect]
     Active Substance: ALENDRONATE SODIUM
     Indication: OSTEOPOROSIS
     Dosage: 10 MG, QD
     Route: 048
     Dates: start: 19980901, end: 2004
  4. FOSAMAX PLUS D [Suspect]
     Active Substance: ALENDRONATE SODIUM\CHOLECALCIFEROL
     Indication: OSTEOPOROSIS
     Dosage: 70 MG/2800 IU, UNK
     Route: 048
     Dates: start: 200410, end: 200810
  5. FOSAMAX [Suspect]
     Active Substance: ALENDRONATE SODIUM
     Dosage: 45 MG, UNK
     Dates: start: 200310, end: 200410

REACTIONS (13)
  - Femur fracture [Unknown]
  - Gastrooesophageal reflux disease [Unknown]
  - Large intestinal polypectomy [Unknown]
  - Osteopenia [Unknown]
  - Arthralgia [Not Recovered/Not Resolved]
  - Fall [Unknown]
  - Forearm fracture [Unknown]
  - Fall [Unknown]
  - Back pain [Not Recovered/Not Resolved]
  - Intramedullary rod insertion [Unknown]
  - Arthritis [Unknown]
  - Surgery [Unknown]
  - Forearm fracture [Unknown]

NARRATIVE: CASE EVENT DATE: 2003
